FAERS Safety Report 8790280 (Version 1)
Quarter: 2012Q4

REPORT INFORMATION
  Report Type: 
  Country: PL (occurrence: PL)
  Receive Date: 20120917
  Receipt Date: 20120917
  Transmission Date: 20130627
  Serious: Yes (Other)
  Sender: FDA-Public Use
  Company Number: PL-JNJFOC-20120905395

PATIENT
  Age: 24 Year
  Sex: Male

DRUGS (2)
  1. KETOCONAZOLE [Suspect]
     Indication: CUSHING^S SYNDROME
     Dosage: 12 week
     Route: 065
  2. KETOCONAZOLE [Suspect]
     Indication: PREMEDICATION
     Dosage: 12 week
     Route: 065

REACTIONS (6)
  - Blood corticotrophin increased [Recovered/Resolved]
  - Blood cortisol decreased [Recovered/Resolved]
  - Abdominal pain [Recovered/Resolved]
  - Nausea [Recovered/Resolved]
  - Vomiting [Recovered/Resolved]
  - Off label use [Recovered/Resolved]
